FAERS Safety Report 13483351 (Version 2)
Quarter: 2017Q2

REPORT INFORMATION
  Report Type: Report from Study
  Country: PE (occurrence: PE)
  Receive Date: 20170426
  Receipt Date: 20170426
  Transmission Date: 20170830
  Serious: Yes (Other)
  Sender: FDA-Public Use
  Company Number: PE-009507513-1704PER008170

PATIENT
  Sex: Male

DRUGS (1)
  1. JANUMET [Suspect]
     Active Substance: METFORMIN HYDROCHLORIDE\SITAGLIPTIN PHOSPHATE
     Indication: DIABETES MELLITUS
     Dosage: 1 TABLET (50 MG/ 500 MG), QD
     Route: 048
     Dates: start: 2012, end: 201703

REACTIONS (3)
  - Cardiac disorder [Unknown]
  - Inappropriate schedule of drug administration [Unknown]
  - Angina unstable [Unknown]

NARRATIVE: CASE EVENT DATE: 2012
